FAERS Safety Report 4949567-5 (Version None)
Quarter: 2006Q1

REPORT INFORMATION
  Report Type: 
  Country: None (occurrence: None)
  Receive Date: 20060316
  Receipt Date: 20060306
  Transmission Date: 20060701
  Serious: Yes (Hospitalization)
  Sender: FDA-Public Use
  Company Number: 231260K06USA

PATIENT
  Age: 38 Year
  Sex: Female
  Weight: 40.8 kg

DRUGS (1)
  1. REBIF [Suspect]
     Indication: MULTIPLE SCLEROSIS
     Dosage: 44 MCG, 3 IN 1 WEEKS, SUBCUTANEOUS
     Route: 058
     Dates: start: 20050615, end: 20060227

REACTIONS (7)
  - ABASIA [None]
  - BODY TEMPERATURE INCREASED [None]
  - DEHYDRATION [None]
  - GASTROINTESTINAL DISORDER [None]
  - OVERGROWTH BACTERIAL [None]
  - VOMITING [None]
  - WHITE BLOOD CELL COUNT DECREASED [None]
